FAERS Safety Report 10728866 (Version 5)
Quarter: 2015Q3

REPORT INFORMATION
  Report Type: Report from Study
  Country: ES (occurrence: ES)
  Receive Date: 20150122
  Receipt Date: 20150928
  Transmission Date: 20151125
  Serious: Yes (Hospitalization)
  Sender: FDA-Public Use
  Company Number: ES-JNJFOC-20141216372

PATIENT
  Age: 85 Year
  Sex: Male
  Weight: 101.8 kg

DRUGS (5)
  1. PREDNISONE. [Suspect]
     Active Substance: PREDNISONE
     Indication: PROSTATE CANCER
     Route: 065
     Dates: start: 20140903
  2. ABIRATERONE ACETATE [Suspect]
     Active Substance: ABIRATERONE ACETATE
     Indication: PROSTATE CANCER
     Dosage: CYCLE 5, DAY 1
     Route: 048
     Dates: start: 20140903, end: 20141219
  3. ATROVENT [Concomitant]
     Active Substance: IPRATROPIUM BROMIDE
     Route: 065
     Dates: start: 201403
  4. SALMETEROL [Concomitant]
     Active Substance: SALMETEROL
     Route: 065
     Dates: start: 201403
  5. IBUPROFEN. [Concomitant]
     Active Substance: IBUPROFEN
     Route: 048
     Dates: start: 20141120

REACTIONS (4)
  - Back pain [Not Recovered/Not Resolved]
  - Chronic obstructive pulmonary disease [Not Recovered/Not Resolved]
  - Oedema peripheral [Recovered/Resolved]
  - Cardiac failure chronic [Recovered/Resolved]

NARRATIVE: CASE EVENT DATE: 20141220
